FAERS Safety Report 7669171-8 (Version None)
Quarter: 2011Q3

REPORT INFORMATION
  Report Type: 
  Country: None (occurrence: None)
  Receive Date: 20110808
  Receipt Date: 20110728
  Transmission Date: 20111222
  Serious: Yes (Other)
  Sender: FDA-Public Use
  Company Number: PHHY2011US49903

PATIENT
  Sex: Female
  Weight: 65.76 kg

DRUGS (2)
  1. EXJADE [Suspect]
     Dosage: 2 DF, QD
     Route: 048
  2. EXJADE [Suspect]
     Indication: CHRONIC LYMPHOCYTIC LEUKAEMIA
     Dosage: 1750 MG, QD
     Route: 048
     Dates: start: 20110203

REACTIONS (2)
  - HEPATIC ENZYME INCREASED [None]
  - HEPATOMEGALY [None]
